FAERS Safety Report 9827133 (Version 1)
Quarter: 2014Q1

REPORT INFORMATION
  Report Type: Spontaneous
  Country: BR (occurrence: BR)
  Receive Date: 20140117
  Receipt Date: 20140117
  Transmission Date: 20141002
  Serious: Yes (Hospitalization)
  Sender: FDA-Public Use
  Company Number: BR-ASTRAZENECA-2014SE02597

PATIENT
  Age: 903 Month
  Sex: Male
  Weight: 64 kg

DRUGS (6)
  1. ATENOLOL [Suspect]
     Route: 048
     Dates: start: 20130403
  2. BRILINTA [Suspect]
     Route: 048
     Dates: start: 20130403
  3. SUSTRATE [Concomitant]
     Indication: HEART ALTERNATION
     Dosage: THREE TIMES A DAY
     Route: 048
     Dates: start: 20130403
  4. LIPITOR [Concomitant]
     Route: 048
     Dates: start: 20130403
  5. ASPIRINA PREVENT [Concomitant]
     Indication: ANTICOAGULANT THERAPY
     Route: 048
     Dates: start: 20130403
  6. ULTRAVATA [Concomitant]
     Indication: INTRAOCULAR PRESSURE TEST

REACTIONS (1)
  - Retinal detachment [Recovered/Resolved]
